FAERS Safety Report 24112398 (Version 1)
Quarter: 2024Q3

REPORT INFORMATION
  Report Type: Spontaneous
  Country: US (occurrence: US)
  Receive Date: 20240719
  Receipt Date: 20240719
  Transmission Date: 20241016
  Serious: Yes (Other)
  Sender: AMGEN
  Company Number: US-AMGEN-USASP2024142536

PATIENT
  Sex: Female

DRUGS (1)
  1. PROLIA [Suspect]
     Active Substance: DENOSUMAB
     Indication: Osteopenia
     Dosage: UNK, Q6MO
     Route: 065

REACTIONS (4)
  - Atypical femur fracture [Unknown]
  - Fracture nonunion [Unknown]
  - Scoliosis [Unknown]
  - Off label use [Unknown]

NARRATIVE: CASE EVENT DATE: 20230701
